FAERS Safety Report 10073454 (Version 2)
Quarter: 2014Q2

REPORT INFORMATION
  Report Type: Spontaneous
  Country: FR (occurrence: FR)
  Receive Date: 20140411
  Receipt Date: 20140613
  Transmission Date: 20141212
  Serious: Yes (Hospitalization)
  Sender: FDA-Public Use
  Company Number: FR-BRACCO-001422

PATIENT
  Age: 71 Year
  Sex: Male

DRUGS (2)
  1. IOPAMIRON [Suspect]
     Route: 008
     Dates: start: 20131217, end: 20131217
  2. ALTIM [Suspect]
     Dosage: DF = AMPOULE
     Route: 008
     Dates: start: 20131217, end: 20131217

REACTIONS (2)
  - Cerebral venous thrombosis [Recovering/Resolving]
  - Paraplegia [Recovering/Resolving]
